FAERS Safety Report 24590594 (Version 4)
Quarter: 2025Q1

REPORT INFORMATION
  Report Type: Report from Study
  Country: DE (occurrence: DE)
  Receive Date: 20241107
  Receipt Date: 20250227
  Transmission Date: 20250408
  Serious: Yes (Hospitalization, Disabling, Other)
  Sender: NOVARTIS
  Company Number: DE-002147023-NVSC2024DE213352

PATIENT
  Sex: Male
  Weight: 84 kg

DRUGS (1)
  1. MAYZENT [Suspect]
     Active Substance: SIPONIMOD
     Indication: Secondary progressive multiple sclerosis
     Dosage: 2 MG, QD (TITRATION PHASE UP TO A MAINTENANCE DOSAGE) (TREATMENT DISCONTINUED)
     Route: 048
     Dates: start: 20220524, end: 20231129

REACTIONS (3)
  - Hemiparesis [Not Recovered/Not Resolved]
  - Language disorder [Not Recovered/Not Resolved]
  - Coronavirus infection [Recovered/Resolved]

NARRATIVE: CASE EVENT DATE: 20230918
